FAERS Safety Report 7528718-2 (Version None)
Quarter: 2011Q2

REPORT INFORMATION
  Report Type: 
  Country: None (occurrence: None)
  Receive Date: 20110607
  Receipt Date: 20110601
  Transmission Date: 20111010
  Serious: No
  Sender: FDA-Public Use
  Company Number: DE-SANOFI-AVENTIS-2011SA024036

PATIENT
  Age: 28 Year
  Sex: Female

DRUGS (5)
  1. STEROFUNDIN [Concomitant]
     Route: 042
     Dates: start: 20110318, end: 20110318
  2. FERRLECIT [Suspect]
     Indication: ANAEMIA
     Route: 040
     Dates: start: 20110318, end: 20110321
  3. OXYTOCIN [Concomitant]
     Route: 042
     Dates: start: 20110317, end: 20110317
  4. OXYTOCIN [Concomitant]
     Route: 042
     Dates: start: 20110318, end: 20110318
  5. CEFAZOLIN [Concomitant]
     Route: 042
     Dates: start: 20110317, end: 20110317

REACTIONS (2)
  - INJECTION SITE THROMBOSIS [None]
  - INJECTION SITE ERYTHEMA [None]
